FAERS Safety Report 12671548 (Version 3)
Quarter: 2016Q4

REPORT INFORMATION
  Report Type: Spontaneous
  Country: GB (occurrence: GB)
  Receive Date: 20160822
  Receipt Date: 20161027
  Transmission Date: 20170207
  Serious: Yes (Hospitalization)
  Sender: FDA-Public Use
  Company Number: GB-ROCHE-1817495

PATIENT
  Sex: Female
  Weight: 119 kg

DRUGS (6)
  1. CICLESONIDE [Concomitant]
     Active Substance: CICLESONIDE
     Indication: ASTHMA
     Dosage: 160 UCG, BID
     Route: 055
  2. ZAFIRLUKAST. [Concomitant]
     Active Substance: ZAFIRLUKAST
     Indication: ASTHMA
     Dosage: 20 MG, BID
     Route: 048
  3. THEOPHYLLINE [Concomitant]
     Active Substance: THEOPHYLLINE ANHYDROUS
     Indication: ASTHMA
     Dosage: 200 MG, BID
     Route: 048
  4. FOSTAIR [Concomitant]
     Active Substance: BECLOMETHASONE\FORMOTEROL
     Indication: ASTHMA
     Dosage: UNK UNK, BID
     Route: 055
  5. XOLAIR [Suspect]
     Active Substance: OMALIZUMAB
     Indication: ASTHMA
     Dosage: 300 MG, QD
     Route: 058
     Dates: start: 20160413
  6. PREDNISOLON [Concomitant]
     Active Substance: PREDNISOLONE
     Indication: ASTHMA
     Dosage: 10 MG, QD
     Route: 048

REACTIONS (8)
  - Fatigue [Recovering/Resolving]
  - Body mass index abnormal [Unknown]
  - Dyspnoea exertional [Recovering/Resolving]
  - Oedema peripheral [Recovering/Resolving]
  - Congestive cardiomyopathy [Recovering/Resolving]
  - Orthopnoea [Recovering/Resolving]
  - Palpitations [Recovering/Resolving]
  - Dyspnoea [Unknown]
